FAERS Safety Report 8413852-5 (Version None)
Quarter: 2012Q2

REPORT INFORMATION
  Report Type: 
  Country: None (occurrence: None)
  Receive Date: 20120605
  Receipt Date: 20120531
  Transmission Date: 20120825
  Serious: Yes (Hospitalization)
  Sender: FDA-Public Use
  Company Number: US-GLAXOSMITHKLINE-A0979679A

PATIENT
  Age: 67 Year
  Sex: Female

DRUGS (5)
  1. ALLI [Suspect]
     Indication: WEIGHT LOSS DIET
     Route: 048
     Dates: end: 20120530
  2. SINUS MEDICATION [Concomitant]
  3. ANTI-CHOLESTEROL MEDICATION [Concomitant]
  4. ALLERGY MEDICATION [Concomitant]
  5. THYROID MEDICATION [Concomitant]

REACTIONS (14)
  - CONSTIPATION [None]
  - LOSS OF CONSCIOUSNESS [None]
  - ASTHENIA [None]
  - HAEMATOCHEZIA [None]
  - MALAISE [None]
  - HAEMOGLOBIN DECREASED [None]
  - HYPOTENSION [None]
  - DIARRHOEA [None]
  - HEART RATE DECREASED [None]
  - HAEMORRHAGE [None]
  - FREQUENT BOWEL MOVEMENTS [None]
  - STEATORRHOEA [None]
  - RECTAL HAEMORRHAGE [None]
  - TREATMENT NONCOMPLIANCE [None]
